FAERS Safety Report 15787190 (Version 1)
Quarter: 2019Q1

REPORT INFORMATION
  Report Type: Spontaneous
  Country: US (occurrence: US)
  Receive Date: 20190103
  Receipt Date: 20190103
  Transmission Date: 20190417
  Serious: Yes (Hospitalization, Other)
  Sender: FDA-Public Use
  Company Number: US-IMPAX LABORATORIES, LLC-2018-IPXL-04432

PATIENT
  Age: 48 Year
  Sex: Male

DRUGS (3)
  1. CAFFEINE. [Suspect]
     Active Substance: CAFFEINE
     Indication: PRODUCT USED FOR UNKNOWN INDICATION
     Dosage: 7 EXPRESSOS EACH MORNING
     Route: 048
  2. METHYLTESTOSTERONE. [Suspect]
     Active Substance: METHYLTESTOSTERONE
     Indication: PERFORMANCE ENHANCING PRODUCT USE
     Dosage: 60 MILLIGRAM, DAILY, CYCLICAL FASHION FOR EACH YEAR FOR THE LAST 4 YEARS
     Route: 065
  3. AMPHETAMINE [Interacting]
     Active Substance: AMPHETAMINE
     Indication: PERFORMANCE ENHANCING PRODUCT USE
     Dosage: 60 MILLIGRAM
     Route: 048

REACTIONS (4)
  - Psychotic disorder [Recovered/Resolved]
  - Prescription drug used without a prescription [Unknown]
  - Intentional product misuse [Unknown]
  - Drug interaction [Unknown]
